FAERS Safety Report 16113668 (Version 1)
Quarter: 2019Q1

REPORT INFORMATION
  Report Type: Spontaneous
  Country: US (occurrence: US)
  Receive Date: 20190325
  Receipt Date: 20190325
  Transmission Date: 20190418
  Serious: No
  Sender: FDA-Public Use
  Company Number: US-ALLERGAN-1849580US

PATIENT
  Sex: Female

DRUGS (3)
  1. CALCIUM [Concomitant]
     Active Substance: CALCIUM
     Dosage: UNK
     Route: 048
  2. VITAMIN B [Concomitant]
     Active Substance: VITAMIN B
     Dosage: UNK
     Route: 048
  3. LATISSE [Suspect]
     Active Substance: BIMATOPROST
     Indication: GROWTH OF EYELASHES
     Dosage: 1 DROP PER APPLICATOR PER EYE
     Route: 061
     Dates: start: 20181016, end: 20181016

REACTIONS (8)
  - Eyelid irritation [Not Recovered/Not Resolved]
  - Ocular hyperaemia [Recovering/Resolving]
  - Eye irritation [Not Recovered/Not Resolved]
  - Application site paraesthesia [Not Recovered/Not Resolved]
  - Eyelid pain [Not Recovered/Not Resolved]
  - Erythema of eyelid [Not Recovered/Not Resolved]
  - Vision blurred [Not Recovered/Not Resolved]
  - Eyelid disorder [Not Recovered/Not Resolved]

NARRATIVE: CASE EVENT DATE: 20181016
